FAERS Safety Report 6057782-5 (Version None)
Quarter: 2009Q1

REPORT INFORMATION
  Report Type: 
  Country: None (occurrence: None)
  Receive Date: 20090129
  Receipt Date: 20090121
  Transmission Date: 20090719
  Serious: Yes (Other)
  Sender: FDA-Public Use
  Company Number: PHHY2009JP02504

PATIENT

DRUGS (5)
  1. CYCLOSPORINE [Suspect]
     Indication: BONE MARROW TRANSPLANT
  2. CYCLOPHOSPHAMIDE [Suspect]
     Indication: GRAFT VERSUS HOST DISEASE
     Dosage: 1000 MG/M2, UNK
     Route: 042
  3. METHOTREXATE [Concomitant]
     Indication: BONE MARROW TRANSPLANT
  4. PREDNISOLONE [Concomitant]
  5. MYCOPHENOLATE MOFETIL [Concomitant]
     Route: 048

REACTIONS (4)
  - ACUTE GRAFT VERSUS HOST DISEASE [None]
  - ACUTE RESPIRATORY DISTRESS SYNDROME [None]
  - CARDIAC FAILURE [None]
  - CHRONIC GRAFT VERSUS HOST DISEASE [None]
